FAERS Safety Report 7048868 (Version 55)
Quarter: 2021Q3

REPORT INFORMATION
  Report Type: Report from Study
  Country: CA (occurrence: CA)
  Receive Date: 20090713
  Receipt Date: 20210826
  Transmission Date: 20211014
  Serious: Yes (Other)
  Sender: FDA-Public Use
  Company Number: PHHY2009CA27370

PATIENT
  Age: 61 Year
  Sex: Male

DRUGS (4)
  1. SANDOSTATIN LAR DEPOT [Suspect]
     Active Substance: OCTREOTIDE ACETATE
     Indication: METASTATIC CARCINOID TUMOUR
     Dosage: 60 MG, QMO (EVERY 4 WEEKS)
     Route: 030
     Dates: start: 20060926
  2. MULTIVITAMIN [Concomitant]
     Active Substance: VITAMINS
     Indication: PRODUCT USED FOR UNKNOWN INDICATION
     Dosage: UNK
     Route: 065
  3. SANDOSTATIN LAR DEPOT [Suspect]
     Active Substance: OCTREOTIDE ACETATE
  4. SANDOSTATIN LAR DEPOT [Suspect]
     Active Substance: OCTREOTIDE ACETATE

REACTIONS (19)
  - Metastatic carcinoid tumour [Unknown]
  - Abdominal pain [Unknown]
  - Metastases to lymph nodes [Unknown]
  - Weight decreased [Unknown]
  - Blood pressure systolic increased [Unknown]
  - Blood pressure increased [Unknown]
  - Hepatitis [Unknown]
  - Hepatic pain [Recovering/Resolving]
  - Pyrexia [Unknown]
  - Weight increased [Unknown]
  - Blood pressure fluctuation [Unknown]
  - Cholelithiasis [Unknown]
  - Metastases to spleen [Unknown]
  - Hepatomegaly [Unknown]
  - Malignant neoplasm progression [Unknown]
  - Metastases to pancreas [Unknown]
  - Body temperature decreased [Unknown]
  - Food poisoning [Unknown]
  - Heart rate irregular [Unknown]

NARRATIVE: CASE EVENT DATE: 20160722
